FAERS Safety Report 8315166-0 (Version None)
Quarter: 2012Q2

REPORT INFORMATION
  Report Type: 
  Country: None (occurrence: None)
  Receive Date: 20120426
  Receipt Date: 20120416
  Transmission Date: 20120825
  Serious: Yes (Life-Threatening, Other)
  Sender: FDA-Public Use
  Company Number: FR-GLAXOSMITHKLINE-B0609349A

PATIENT
  Sex: Male
  Weight: 50 kg

DRUGS (29)
  1. SUFENTANIL CITRATE [Suspect]
     Indication: SEDATION
     Route: 042
     Dates: start: 20091121, end: 20091128
  2. TAMIFLU [Suspect]
     Indication: H1N1 INFLUENZA
     Route: 048
     Dates: start: 20091121, end: 20091127
  3. AMIKACIN [Concomitant]
     Indication: INFECTION
     Route: 065
     Dates: start: 20091129, end: 20091202
  4. CEFTRIAXONE SODIUM [Suspect]
     Indication: INFECTION
     Dosage: 2G PER DAY
     Route: 042
     Dates: start: 20091124, end: 20091128
  5. CIPROFLOXACIN HYDROCHLORIDE [Concomitant]
     Indication: INFECTION
     Dosage: 600MG TWICE PER DAY
     Route: 042
     Dates: start: 20091121, end: 20091124
  6. VENTILATION [Concomitant]
     Indication: RESPIRATORY DISTRESS
     Dates: start: 20091118
  7. CORTICOID [Concomitant]
     Indication: LARYNGEAL DYSPNOEA
     Route: 065
     Dates: start: 20091201, end: 20091201
  8. MILRINONE LACTATE [Suspect]
     Route: 042
     Dates: start: 20091125, end: 20091128
  9. STERILE WATER FOR INJECTION [Concomitant]
     Route: 055
     Dates: start: 20091207, end: 20091209
  10. CEFOTAXIME [Suspect]
     Indication: INFECTION
     Dosage: 3G THREE TIMES PER DAY
     Route: 042
     Dates: start: 20091121, end: 20091128
  11. NEXIUM [Concomitant]
     Dosage: 20MG PER DAY
     Route: 042
     Dates: start: 20091121
  12. NOZINAN [Concomitant]
     Route: 065
  13. NIMBEX [Concomitant]
     Dosage: .3MGKH UNKNOWN
     Route: 042
     Dates: start: 20091121, end: 20091128
  14. LASIX [Concomitant]
     Dosage: 100MG PER DAY
     Route: 042
     Dates: start: 20091124
  15. POLYETHYLENE GLYCOL [Concomitant]
     Dosage: 10G TWICE PER DAY
     Route: 048
     Dates: start: 20091123
  16. KETAMINE HCL [Suspect]
     Indication: SEDATION
     Route: 042
     Dates: start: 20091121, end: 20091128
  17. BIOCIDAN [Concomitant]
     Route: 061
  18. PIPERACILLIN [Concomitant]
     Indication: INFECTION
     Dates: start: 20091129, end: 20091202
  19. VANCOMYCIN [Concomitant]
     Indication: INFECTION
     Route: 065
     Dates: start: 20091129, end: 20091202
  20. CATAPRES [Concomitant]
     Route: 065
     Dates: start: 20091130, end: 20091205
  21. ZANAMIVIR [Suspect]
     Indication: H1N1 INFLUENZA
     Dosage: 600MG SINGLE DOSE
     Route: 042
     Dates: start: 20091128, end: 20091128
  22. DOBUTAMINE HCL [Concomitant]
     Route: 042
     Dates: start: 20091126, end: 20091127
  23. VITAMIN A [Concomitant]
     Route: 061
  24. INTUBATION [Concomitant]
     Indication: RESPIRATORY DISTRESS
     Dates: start: 20091118
  25. ADRENALIN IN OIL INJ [Concomitant]
     Indication: LARYNGEAL DYSPNOEA
     Route: 055
     Dates: start: 20091204
  26. MIDAZOLAM [Suspect]
     Indication: SEDATION
     Route: 042
     Dates: start: 20091121, end: 20091128
  27. NICARDIPINE HYDROCHLORIDE [Concomitant]
     Indication: BLOOD PRESSURE INCREASED
     Route: 042
     Dates: start: 20091127
  28. NOREPINEPHRINE BITARTRATE [Concomitant]
     Route: 042
     Dates: start: 20091122, end: 20091123
  29. OXYGEN [Concomitant]
     Indication: ACUTE RESPIRATORY DISTRESS SYNDROME
     Route: 065
     Dates: start: 20091118, end: 20091209

REACTIONS (8)
  - ALANINE AMINOTRANSFERASE INCREASED [None]
  - CHOLESTASIS [None]
  - ASPARTATE AMINOTRANSFERASE INCREASED [None]
  - BLOOD CREATININE INCREASED [None]
  - TOXICITY TO VARIOUS AGENTS [None]
  - HEPATOCELLULAR INJURY [None]
  - RENAL FAILURE [None]
  - GAMMA-GLUTAMYLTRANSFERASE INCREASED [None]
